FAERS Safety Report 17985085 (Version 11)
Quarter: 2022Q2

REPORT INFORMATION
  Report Type: Spontaneous
  Country: GB (occurrence: GB)
  Receive Date: 20200706
  Receipt Date: 20220502
  Transmission Date: 20220720
  Serious: Yes (Hospitalization, Other)
  Sender: FDA-Public Use
  Company Number: GB-VIIV HEALTHCARE LIMITED-GB2020EME116192

PATIENT
  Sex: Male

DRUGS (24)
  1. LAMIVUDINE [Suspect]
     Active Substance: LAMIVUDINE
     Indication: Product used for unknown indication
     Dosage: 300 MG, QD
     Route: 065
  2. LAMIVUDINE [Suspect]
     Active Substance: LAMIVUDINE
     Dosage: 300 MG, QD
     Route: 065
  3. LAMIVUDINE [Suspect]
     Active Substance: LAMIVUDINE
     Dosage: 300 MG, QD
     Route: 065
  4. LAMIVUDINE [Suspect]
     Active Substance: LAMIVUDINE
     Dosage: 300 MG, QD
     Route: 065
  5. LAMIVUDINE [Suspect]
     Active Substance: LAMIVUDINE
     Dosage: 300 MG, QD
     Route: 065
  6. LAMIVUDINE [Suspect]
     Active Substance: LAMIVUDINE
     Dosage: 600 MG, QD
     Route: 065
  7. ABACAVIR [Suspect]
     Active Substance: ABACAVIR
     Indication: Product used for unknown indication
     Dosage: 600 MG, QD
     Route: 065
  8. ABACAVIR [Suspect]
     Active Substance: ABACAVIR
     Dosage: 300 MG, QD
     Route: 065
  9. ABACAVIR [Suspect]
     Active Substance: ABACAVIR
     Dosage: 300 MG, QD
     Route: 065
  10. ABACAVIR [Suspect]
     Active Substance: ABACAVIR
     Dosage: 300 MG, QD
     Route: 065
  11. ABACAVIR [Suspect]
     Active Substance: ABACAVIR
     Dosage: 300 MG, QD
     Route: 065
  12. ABACAVIR [Suspect]
     Active Substance: ABACAVIR
     Dosage: 600 MG, QD
     Route: 065
  13. ABACAVIR [Suspect]
     Active Substance: ABACAVIR
     Dosage: 300 MG, QD
     Route: 065
  14. ABACAVIR [Suspect]
     Active Substance: ABACAVIR
     Dosage: 600 MG, QD
     Route: 065
  15. LAMIVUDINE [Suspect]
     Active Substance: LAMIVUDINE
     Indication: Product used for unknown indication
     Dosage: 100 MG, QD
     Route: 065
  16. LAMIVUDINE [Suspect]
     Active Substance: LAMIVUDINE
     Dosage: 100 MG, QD
     Route: 065
  17. LAMIVUDINE [Suspect]
     Active Substance: LAMIVUDINE
     Dosage: 100 MG, QD (OD)
     Route: 065
  18. LAMIVUDINE [Suspect]
     Active Substance: LAMIVUDINE
     Dosage: 100 MG, QD (1D,100)
     Route: 065
  19. LAMIVUDINE [Suspect]
     Active Substance: LAMIVUDINE
     Dosage: 100 MG, QD (STRENGTH 100 OD)
     Route: 065
  20. EFAVIRENZ [Suspect]
     Active Substance: EFAVIRENZ
     Indication: Product used for unknown indication
     Dosage: UNK UNK, QD(STRENGTH 600)
     Route: 065
  21. EFAVIRENZ [Suspect]
     Active Substance: EFAVIRENZ
     Dosage: 600 MG, QD
     Route: 065
  22. EFAVIRENZ [Suspect]
     Active Substance: EFAVIRENZ
     Dosage: 600 MG, QD
     Route: 065
  23. EFAVIRENZ [Suspect]
     Active Substance: EFAVIRENZ
     Dosage: 300 MG, QD
     Route: 065
  24. ABACAVIR [Suspect]
     Active Substance: ABACAVIR
     Indication: Product used for unknown indication
     Dosage: 1 DF, QD

REACTIONS (7)
  - Hospitalisation [Unknown]
  - Lung neoplasm malignant [Unknown]
  - Lung cancer metastatic [Unknown]
  - Metastases to central nervous system [Unknown]
  - Feeling abnormal [Unknown]
  - Life expectancy shortened [Not Recovered/Not Resolved]
  - Malaise [Unknown]
